FAERS Safety Report 8078827-7 (Version None)
Quarter: 2012Q1

REPORT INFORMATION
  Report Type: 
  Country: None (occurrence: None)
  Receive Date: 20120127
  Receipt Date: 20110117
  Transmission Date: 20120608
  Serious: No
  Sender: FDA-Public Use
  Company Number: US-ABBOTT-11P-163-0699828-00

PATIENT
  Age: 42 Year
  Sex: Female
  Weight: 98.518 kg

DRUGS (2)
  1. HUMIRA [Suspect]
     Indication: PRODUCT USED FOR UNKNOWN INDICATION
  2. TOPAMAX [Suspect]
     Indication: PRODUCT USED FOR UNKNOWN INDICATION
     Dates: start: 20110101

REACTIONS (3)
  - OEDEMA PERIPHERAL [None]
  - HYPOAESTHESIA [None]
  - PERIPHERAL COLDNESS [None]
